FAERS Safety Report 15774179 (Version 2)
Quarter: 2019Q1

REPORT INFORMATION
  Report Type: Spontaneous
  Country: SE (occurrence: SE)
  Receive Date: 20181229
  Receipt Date: 20190117
  Transmission Date: 20190417
  Serious: Yes (Other)
  Sender: FDA-Public Use
  Company Number: SE-AUROBINDO-AUR-APL-2018-063598

PATIENT
  Age: 67 Year
  Sex: Male
  Weight: 90 kg

DRUGS (1)
  1. LOSARTAN/HYDROCHLOROTHIAZIDE TABLET 100/25MG [Suspect]
     Active Substance: HYDROCHLOROTHIAZIDE\LOSARTAN
     Indication: HYPERTENSION
     Dosage: (1) UNK, ONCE A DAY, HAFT BEHANDLING:NARMARE 10 AR
     Route: 065
     Dates: end: 20181126

REACTIONS (1)
  - Skin cancer [Unknown]

NARRATIVE: CASE EVENT DATE: 20181024
